FAERS Safety Report 7897378-3 (Version None)
Quarter: 2011Q4

REPORT INFORMATION
  Report Type: 
  Country: None (occurrence: None)
  Receive Date: 20111107
  Receipt Date: 20111025
  Transmission Date: 20120403
  Serious: Yes (Other)
  Sender: FDA-Public Use
  Company Number: JP-UCBSA-044422

PATIENT

DRUGS (1)
  1. KEPPRA [Suspect]
     Route: 048
     Dates: start: 20110901, end: 20111001

REACTIONS (1)
  - PANCYTOPENIA [None]
